FAERS Safety Report 20640401 (Version 1)
Quarter: 2022Q1

REPORT INFORMATION
  Report Type: Spontaneous
  Country: US (occurrence: US)
  Receive Date: 20220327
  Receipt Date: 20220327
  Transmission Date: 20220423
  Serious: No
  Sender: FDA-Public Use
  Company Number: US-SA-SAC20220321000023

PATIENT
  Sex: Male

DRUGS (6)
  1. DUPIXENT [Suspect]
     Active Substance: DUPILUMAB
     Indication: Dermatitis atopic
     Dosage: 300 MG, QOW
     Route: 058
  2. RINVOQ [Concomitant]
     Active Substance: UPADACITINIB
     Dosage: 15 MG, QD
  3. PREDNISONE [Concomitant]
     Active Substance: PREDNISONE
     Dosage: 10 MG
  4. VITAMINS [Concomitant]
     Active Substance: VITAMINS
  5. LYRICA [Concomitant]
     Active Substance: PREGABALIN
     Dosage: 100 MG
  6. MESTINON [Concomitant]
     Active Substance: PYRIDOSTIGMINE BROMIDE
     Dosage: 180 MG, QD

REACTIONS (3)
  - Injection site swelling [Unknown]
  - White blood cell count increased [Unknown]
  - Hypersensitivity [Unknown]
